FAERS Safety Report 6342070-X (Version None)
Quarter: 2009Q4

REPORT INFORMATION
  Report Type: 
  Country: None (occurrence: None)
  Receive Date: 20090903
  Receipt Date: 20090824
  Transmission Date: 20100525
  Serious: Yes (Death)
  Sender: FDA-Public Use
  Company Number: GXKR2009TW09523

PATIENT
  Age: 82 Year
  Sex: Female

DRUGS (4)
  1. CYCLOSPORINE [Suspect]
     Indication: RHEUMATOID ARTHRITIS
  2. HYDROXYCHLOROQUINE SULFATE [Suspect]
     Indication: RHEUMATOID ARTHRITIS
  3. CORTICOSTEROIDS (NO INGREDIENTS/SUBSTANCES) [Suspect]
     Indication: RHEUMATOID ARTHRITIS
  4. INSULIN (INSULIN) INJECTION [Concomitant]

REACTIONS (17)
  - ATRIAL FIBRILLATION [None]
  - BLOOD PRESSURE DECREASED [None]
  - CANDIDA PNEUMONIA [None]
  - CANDIDA SEPSIS [None]
  - CSF GLUCOSE INCREASED [None]
  - DELIRIUM [None]
  - DYSARTHRIA [None]
  - EYE MOVEMENT DISORDER [None]
  - HYDROCEPHALUS [None]
  - HYPOAESTHESIA [None]
  - HYPONATRAEMIA [None]
  - ISCHAEMIC STROKE [None]
  - LEUKOCYTOSIS [None]
  - MENINGITIS CRYPTOCOCCAL [None]
  - RED BLOOD CELLS CSF POSITIVE [None]
  - SOMNOLENCE [None]
  - TRANSIENT ISCHAEMIC ATTACK [None]
